FAERS Safety Report 13164036 (Version 1)
Quarter: 2017Q1

REPORT INFORMATION
  Report Type: Spontaneous
  Country: GB (occurrence: GB)
  Receive Date: 20170130
  Receipt Date: 20170130
  Transmission Date: 20170428
  Serious: Yes (Hospitalization, Other)
  Sender: FDA-Public Use
  Company Number: GB-PFIZER INC-2017031607

PATIENT
  Age: 70 Year
  Sex: Female

DRUGS (8)
  1. FENTANYL. [Suspect]
     Active Substance: FENTANYL
     Dosage: 20 100 UG, FENTANYL PATCHES EVERY 2 MONTHS
  2. ORAMORPH [Concomitant]
     Active Substance: MORPHINE SULFATE
     Indication: BIOPSY LYMPH GLAND
  3. MIRTAZAPINE. [Concomitant]
     Active Substance: MIRTAZAPINE
     Dosage: 15 MG, DAILY
  4. ORAMORPH [Concomitant]
     Active Substance: MORPHINE SULFATE
     Indication: BREAST CONSERVING SURGERY
     Dosage: 20 ML, DAILY
     Route: 048
  5. FENTANYL. [Suspect]
     Active Substance: FENTANYL
     Dosage: 14100 UG, UNK
     Dates: start: 201407
  6. FENTANYL. [Suspect]
     Active Substance: FENTANYL
     Dosage: 150 UG, UNK
     Dates: start: 201012
  7. FENTANYL. [Suspect]
     Active Substance: FENTANYL
     Dosage: 100 UG, UNK
  8. TRAMADOL. [Concomitant]
     Active Substance: TRAMADOL
     Dosage: UNK

REACTIONS (3)
  - Intentional overdose [Unknown]
  - Suicide attempt [Unknown]
  - Hypersomnia [Unknown]
